FAERS Safety Report 6989637-3 (Version None)
Quarter: 2010Q3

REPORT INFORMATION
  Report Type: 
  Country: None (occurrence: None)
  Receive Date: 20100916
  Receipt Date: 20100211
  Transmission Date: 20110219
  Serious: Yes (Hospitalization)
  Sender: FDA-Public Use
  Company Number: CH-PFIZER INC-2010018135

PATIENT
  Age: 73 Year
  Sex: Male

DRUGS (17)
  1. LYRICA [Suspect]
     Indication: TRIGEMINAL NEURALGIA
     Dosage: 50 MG, 1X/DAY
     Route: 048
     Dates: start: 20100118
  2. LYRICA [Suspect]
     Dosage: 150 MG, 1X/DAY
     Route: 048
  3. TRILEPTAL [Concomitant]
     Indication: TRIGEMINAL NEURALGIA
     Dosage: 300 MG, 3X/DAY
     Route: 048
     Dates: start: 20091101
  4. LAMICTAL [Concomitant]
     Indication: TRIGEMINAL NEURALGIA
     Dosage: 75 MG, 1X/DAY
     Route: 048
     Dates: start: 20091101
  5. AMITRIPTYLINE HCL [Concomitant]
     Indication: TRIGEMINAL NEURALGIA
     Dosage: 50 MG, 1X/DAY
     Route: 048
     Dates: start: 20091101
  6. ACETAMINOPHEN [Concomitant]
     Indication: TRIGEMINAL NEURALGIA
     Dosage: 1 G, 3X/DAY
     Route: 048
     Dates: start: 20091101
  7. DURAGESIC-100 [Concomitant]
     Indication: TRIGEMINAL NEURALGIA
     Dosage: 37 UG, EVERY 72 HOURS
     Route: 062
     Dates: start: 20091101
  8. CIPRALEX [Concomitant]
     Indication: BIPOLAR DISORDER
     Dosage: 10 MG, 1X/DAY
     Route: 048
     Dates: start: 20091101
  9. PANTOPRAZOLE SODIUM [Concomitant]
     Dosage: 40 MG, 1X/DAY
     Route: 048
     Dates: start: 20091101
  10. TRANSIPEG [Concomitant]
     Dosage: 2 DF, 1X/DAY
     Route: 048
     Dates: start: 20091101
  11. LAXOBERON [Concomitant]
     Dosage: 20 GTT, 1X/DAY
     Route: 048
     Dates: start: 20091101
  12. PRADIF [Concomitant]
     Dosage: 400 UG, 1X/DAY
     Route: 048
     Dates: start: 20091101
  13. HALDOL [Concomitant]
     Dosage: 20 GTT, 1X/DAY
     Route: 048
     Dates: start: 20091101, end: 20100120
  14. PASPERTIN [Concomitant]
     Dosage: 10 MG, 3X/DAY
     Route: 048
     Dates: start: 20091101
  15. NAVOBAN [Concomitant]
     Dosage: 5 MG, 1X/DAY
     Route: 048
     Dates: start: 20091101, end: 20100120
  16. ZOVIRAX [Concomitant]
     Dosage: 1 DF, 2X/DAY
     Route: 047
     Dates: start: 20091101
  17. FRAGMIN [Concomitant]
     Dosage: 1 DF, 1X/DAY
     Route: 058
     Dates: start: 20100118

REACTIONS (5)
  - CHILLS [None]
  - GAIT DISTURBANCE [None]
  - MEMORY IMPAIRMENT [None]
  - PARKINSONISM [None]
  - TREMOR [None]
